FAERS Safety Report 9027935 (Version 1)
Quarter: 2013Q1

REPORT INFORMATION
  Report Type: Spontaneous
  Country: KR (occurrence: KR)
  Receive Date: 20130123
  Receipt Date: 20130123
  Transmission Date: 20140127
  Serious: Yes (Other)
  Sender: FDA-Public Use
  Company Number: CHPA2013KR001292

PATIENT
  Age: 0 Year
  Sex: 0

DRUGS (4)
  1. OTRIVIN [Suspect]
     Dosage: UNK, MORE THAN 8 TIMES/DAY
     Route: 064
     Dates: start: 201212
  2. OTRIVIN [Suspect]
     Dosage: UNK, 4-5 TIMES/DAY
     Route: 064
     Dates: start: 201211, end: 201211
  3. OTRIVIN [Suspect]
     Dosage: UNK, BID
     Route: 064
     Dates: start: 201210, end: 201211
  4. OTRIVIN [Suspect]
     Dosage: UNK, 1-2 TIMES/DAY
     Route: 064
     Dates: start: 201209, end: 201210

REACTIONS (3)
  - Premature baby [Unknown]
  - Foetal exposure during pregnancy [Unknown]
  - Maternal drugs affecting foetus [None]
